FAERS Safety Report 17386060 (Version 1)
Quarter: 2020Q1

REPORT INFORMATION
  Report Type: Spontaneous
  Country: US (occurrence: US)
  Receive Date: 20200206
  Receipt Date: 20200206
  Transmission Date: 20200409
  Serious: No
  Sender: FDA-Public Use
  Company Number: US-ABBVIE-19K-163-2930652-00

PATIENT
  Age: 51 Year
  Sex: Male
  Weight: 120.31 kg

DRUGS (3)
  1. HUMIRA [Suspect]
     Active Substance: ADALIMUMAB
     Route: 058
     Dates: start: 20190910
  2. HUMIRA [Suspect]
     Active Substance: ADALIMUMAB
     Route: 058
     Dates: start: 20190903, end: 20190903
  3. HUMIRA [Suspect]
     Active Substance: ADALIMUMAB
     Indication: CARDIAC SARCOIDOSIS
     Route: 058
     Dates: start: 20190827, end: 20190827

REACTIONS (2)
  - Off label use [Not Recovered/Not Resolved]
  - Device issue [Unknown]

NARRATIVE: CASE EVENT DATE: 20190827
